FAERS Safety Report 22619517 (Version 1)
Quarter: 2023Q2

REPORT INFORMATION
  Report Type: Spontaneous
  Country: AU (occurrence: AU)
  Receive Date: 20230620
  Receipt Date: 20230620
  Transmission Date: 20230721
  Serious: Yes (Other)
  Sender: FDA-Public Use
  Company Number: AU-MYLANLABS-2023M1062884

PATIENT
  Sex: Female

DRUGS (2)
  1. HYDROCORTISONE [Suspect]
     Active Substance: HYDROCORTISONE
     Indication: Product used for unknown indication
     Dosage: 8 MILLIGRAM, QID (8MG FOUR TIMES A DAY)
     Route: 065
  2. HYDROCORTISONE [Suspect]
     Active Substance: HYDROCORTISONE
     Dosage: 8 MILLIGRAM, QID (8MG FOUR TIMES A DAY)
     Route: 065

REACTIONS (5)
  - Adrenocortical insufficiency acute [Unknown]
  - Seizure [Unknown]
  - Vomiting [Unknown]
  - Tremor [Unknown]
  - Drug ineffective [Unknown]
